FAERS Safety Report 8540559-6 (Version None)
Quarter: 2012Q3

REPORT INFORMATION
  Report Type: 
  Country: None (occurrence: None)
  Receive Date: 20120726
  Receipt Date: 20110804
  Transmission Date: 20120928
  Serious: No
  Sender: FDA-Public Use
  Company Number: US-ASTRAZENECA-2011SE46889

PATIENT
  Age: 47 Year
  Sex: Female

DRUGS (6)
  1. SEROQUEL XR [Suspect]
     Route: 048
     Dates: start: 20100903
  2. LITHIUM CARBONATE [Concomitant]
  3. TRAZODONE HCL [Concomitant]
  4. SEROQUEL XR [Suspect]
     Indication: BIPOLAR DISORDER
     Route: 048
     Dates: start: 20090101, end: 20100903
  5. SEROQUEL XR [Suspect]
     Route: 048
     Dates: start: 20100903
  6. SEROQUEL XR [Suspect]
     Indication: SCHIZOPHRENIA
     Route: 048
     Dates: start: 20090101, end: 20100903

REACTIONS (2)
  - DRUG EFFECT DELAYED [None]
  - WRONG TECHNIQUE IN DRUG USAGE PROCESS [None]
